FAERS Safety Report 8803075 (Version 1)
Quarter: 2012Q4

REPORT INFORMATION
  Report Type: 
  Country: MY (occurrence: MY)
  Receive Date: 20120924
  Receipt Date: 20120924
  Transmission Date: 20130627
  Serious: Yes (Other)
  Sender: FDA-Public Use
  Company Number: MY-RANBAXY-2012R3-60082

PATIENT
  Age: 45 Year
  Sex: Male

DRUGS (1)
  1. HISTACOL [Suspect]
     Indication: GASTRITIS
     Dosage: 300 mg daily
     Route: 048

REACTIONS (2)
  - Eye irritation [Recovered/Resolved]
  - Ocular hyperaemia [Recovered/Resolved]
